FAERS Safety Report 9992015 (Version 2)
Quarter: 2014Q2

REPORT INFORMATION
  Report Type: Spontaneous
  Country: GB (occurrence: GB)
  Receive Date: 20140310
  Receipt Date: 20140604
  Transmission Date: 20141212
  Serious: Yes (Hospitalization)
  Sender: FDA-Public Use
  Company Number: GB-TEVA-464926ISR

PATIENT
  Age: 59 Year
  Sex: Female
  Weight: 77.2 kg

DRUGS (4)
  1. BACLOFEN [Suspect]
     Dosage: 20 MILLIGRAM DAILY;
     Route: 001
  2. LANSOPRAZOLE [Suspect]
     Dosage: 15 MILLIGRAM DAILY; IN THE MORNING, ORODISPERSIBLE.
     Route: 001
  3. MIRTAZAPINE [Suspect]
     Dosage: 45 MILLIGRAM DAILY; AT NIGHT.
     Route: 001
     Dates: start: 201311
  4. MIRTAZAPINE [Suspect]
     Dosage: 30 MILLIGRAM DAILY; AT NIGHT.
     Route: 001
     Dates: end: 201311

REACTIONS (2)
  - Liver function test abnormal [Not Recovered/Not Resolved]
  - White blood cell count abnormal [Unknown]
